FAERS Safety Report 12830278 (Version 1)
Quarter: 2016Q4

REPORT INFORMATION
  Report Type: Spontaneous
  Country: US (occurrence: US)
  Receive Date: 20161007
  Receipt Date: 20161007
  Transmission Date: 20170207
  Serious: No
  Sender: FDA-Public Use
  Company Number: US-SA-2016SA163624

PATIENT
  Age: 64 Year
  Sex: Female

DRUGS (5)
  1. AUBAGIO [Suspect]
     Active Substance: TERIFLUNOMIDE
     Indication: MULTIPLE SCLEROSIS
     Route: 048
  2. ASPIRIN. [Concomitant]
     Active Substance: ASPIRIN
  3. TYLENOL [Concomitant]
     Active Substance: ACETAMINOPHEN
  4. AZOR [Concomitant]
     Active Substance: AMLODIPINE BESYLATE\OLMESARTAN MEDOXOMIL
  5. MELOXICAM. [Concomitant]
     Active Substance: MELOXICAM

REACTIONS (2)
  - Hypoaesthesia [Unknown]
  - Paraesthesia [Unknown]
